FAERS Safety Report 24420080 (Version 2)
Quarter: 2024Q4

REPORT INFORMATION
  Report Type: Report from Study
  Country: US (occurrence: US)
  Receive Date: 20241010
  Receipt Date: 20241018
  Transmission Date: 20250115
  Serious: No
  Sender: ROCHE
  Company Number: US-ROCHE-3518430

PATIENT
  Age: 41 Year
  Sex: Male

DRUGS (2)
  1. CATHFLO ACTIVASE [Suspect]
     Active Substance: ALTEPLASE
     Indication: Thrombosis in device
     Dosage: VIAL  20 MG ON 29/DEC/2023, 30/DEC/2023 AND 31/DEC/2023
     Route: 065
  2. PULMOZYME [Concomitant]
     Active Substance: DORNASE ALFA
     Dosage: 30

REACTIONS (2)
  - Off label use [Unknown]
  - No adverse event [Unknown]
